FAERS Safety Report 21631846 (Version 2)
Quarter: 2023Q2

REPORT INFORMATION
  Report Type: Spontaneous
  Country: BR (occurrence: BR)
  Receive Date: 20221123
  Receipt Date: 20230503
  Transmission Date: 20230721
  Serious: Yes (Hospitalization, Other)
  Sender: FDA-Public Use
  Company Number: BR-CELLTRION INC.-2022BR019529

PATIENT

DRUGS (4)
  1. INFLIXIMAB [Suspect]
     Active Substance: INFLIXIMAB
     Indication: Crohn^s disease
     Dosage: 4 AMPOULES EVERY 8 WEEKS
     Route: 042
     Dates: start: 20221121
  2. INFLIXIMAB [Suspect]
     Active Substance: INFLIXIMAB
     Indication: Colitis
  3. MESALAMINE [Concomitant]
     Active Substance: MESALAMINE
     Indication: Crohn^s disease
     Dosage: 2 PILLS PER DAY
     Route: 048
     Dates: start: 2011
  4. MESALAMINE [Concomitant]
     Active Substance: MESALAMINE
     Indication: Colitis

REACTIONS (3)
  - Gastrointestinal inflammation [Unknown]
  - Intestinal obstruction [Unknown]
  - Therapy interrupted [Unknown]
